FAERS Safety Report 9820159 (Version 1)
Quarter: 2014Q1

REPORT INFORMATION
  Report Type: Spontaneous
  Country: US (occurrence: None)
  Receive Date: 20140113
  Receipt Date: 20140113
  Transmission Date: 20141002
  Serious: Yes (Other)
  Sender: FDA-Public Use
  Company Number: None

PATIENT
  Age: 40 Year
  Sex: Female
  Weight: 45.36 kg

DRUGS (1)
  1. LAMOTRIGINE ER [Suspect]

REACTIONS (4)
  - Visual impairment [None]
  - Weight decreased [None]
  - Irritability [None]
  - Anger [None]
